FAERS Safety Report 11843672 (Version 42)
Quarter: 2020Q2

REPORT INFORMATION
  Report Type: Report from Study
  Country: CA (occurrence: CA)
  Receive Date: 20151217
  Receipt Date: 20200603
  Transmission Date: 20200713
  Serious: Yes (Other)
  Sender: FDA-Public Use
  Company Number: CA-ROCHE-1467205

PATIENT
  Age: 47 Year
  Sex: Male
  Weight: 96 kg

DRUGS (29)
  1. ACTEMRA [Suspect]
     Active Substance: TOCILIZUMAB
     Indication: RHEUMATOID ARTHRITIS
     Route: 042
     Dates: start: 20140508, end: 20150416
  2. ACTEMRA [Suspect]
     Active Substance: TOCILIZUMAB
     Indication: STILL^S DISEASE
     Route: 042
     Dates: start: 20150514, end: 20150611
  3. ACTEMRA [Suspect]
     Active Substance: TOCILIZUMAB
     Indication: PERICARDITIS
     Route: 042
     Dates: start: 20150709, end: 20190214
  4. ACTEMRA [Suspect]
     Active Substance: TOCILIZUMAB
     Dosage: DOSE ACCORDING TO WEIGHT
     Route: 042
     Dates: start: 20190425, end: 20190425
  5. ACTEMRA [Suspect]
     Active Substance: TOCILIZUMAB
     Route: 042
     Dates: start: 20190829, end: 20190912
  6. NAPROXEN. [Suspect]
     Active Substance: NAPROXEN
     Indication: RHEUMATOID ARTHRITIS
     Route: 065
     Dates: start: 201501, end: 201503
  7. PLAQUENIL [Concomitant]
     Active Substance: HYDROXYCHLOROQUINE SULFATE
  8. VITAMINS WITH MINERALS [Concomitant]
     Active Substance: MINERALS\VITAMINS
  9. ACTEMRA [Suspect]
     Active Substance: TOCILIZUMAB
     Dosage: DOSING ACCORDING TO WEIGHT
     Route: 042
  10. ACTEMRA [Suspect]
     Active Substance: TOCILIZUMAB
     Route: 042
     Dates: start: 20190606, end: 20190606
  11. ACTEMRA [Suspect]
     Active Substance: TOCILIZUMAB
     Route: 042
     Dates: start: 20190814, end: 20190814
  12. ACTEMRA [Suspect]
     Active Substance: TOCILIZUMAB
     Route: 042
     Dates: start: 20191031
  13. ACTEMRA [Suspect]
     Active Substance: TOCILIZUMAB
     Route: 042
     Dates: start: 20191017, end: 20191017
  14. FOLIC ACID. [Concomitant]
     Active Substance: FOLIC ACID
  15. ACTEMRA [Suspect]
     Active Substance: TOCILIZUMAB
     Route: 042
     Dates: start: 20190718, end: 20190801
  16. METHOTREXATE. [Concomitant]
     Active Substance: METHOTREXATE
  17. FLEXERIL [Concomitant]
     Active Substance: CYCLOBENZAPRINE HYDROCHLORIDE
  18. ACTEMRA [Suspect]
     Active Substance: TOCILIZUMAB
     Dosage: DOSING ACCORDING TO WEIGHT
     Route: 042
     Dates: start: 20190314, end: 20190314
  19. ACTEMRA [Suspect]
     Active Substance: TOCILIZUMAB
     Route: 042
     Dates: start: 20190524, end: 20190524
  20. ACTEMRA [Suspect]
     Active Substance: TOCILIZUMAB
     Route: 042
     Dates: start: 20191001, end: 20191001
  21. ACTEMRA [Suspect]
     Active Substance: TOCILIZUMAB
     Dosage: DOSING ACCORDING TO WEIGHT
     Route: 042
     Dates: start: 20190228, end: 20190228
  22. ACTEMRA [Suspect]
     Active Substance: TOCILIZUMAB
     Route: 042
     Dates: start: 20190328, end: 20190328
  23. ACTEMRA [Suspect]
     Active Substance: TOCILIZUMAB
     Dosage: TO ADJUST WITH PT^S WEIGHT; ONGOING: YES
     Route: 042
     Dates: start: 20190509, end: 20190509
  24. CALCIUM [Concomitant]
     Active Substance: CALCIUM
     Route: 065
  25. ACTEMRA [Suspect]
     Active Substance: TOCILIZUMAB
     Route: 042
     Dates: start: 20190620, end: 20190620
  26. ACTEMRA [Suspect]
     Active Substance: TOCILIZUMAB
     Route: 042
     Dates: start: 20190411, end: 20190411
  27. ACTEMRA [Suspect]
     Active Substance: TOCILIZUMAB
     Route: 042
     Dates: start: 20190704, end: 20190704
  28. ACTEMRA [Suspect]
     Active Substance: TOCILIZUMAB
     Route: 042
     Dates: start: 20191017, end: 20191017
  29. INDOCID [INDOMETACIN] [Suspect]
     Active Substance: INDOMETHACIN
     Indication: PRODUCT USED FOR UNKNOWN INDICATION
     Route: 065

REACTIONS (55)
  - Drug hypersensitivity [Recovering/Resolving]
  - Asthenia [Not Recovered/Not Resolved]
  - Chest pain [Not Recovered/Not Resolved]
  - Diarrhoea [Recovered/Resolved]
  - Weight increased [Unknown]
  - Nasopharyngitis [Not Recovered/Not Resolved]
  - Arthralgia [Recovering/Resolving]
  - Oxygen saturation decreased [Unknown]
  - Blood pressure systolic increased [Unknown]
  - Blood pressure increased [Unknown]
  - Osteoarthritis [Unknown]
  - Muscle spasms [Unknown]
  - Fibula fracture [Unknown]
  - Productive cough [Recovered/Resolved]
  - Swelling [Not Recovered/Not Resolved]
  - Abdominal pain upper [Not Recovered/Not Resolved]
  - Peripheral swelling [Recovering/Resolving]
  - Neuralgia [Unknown]
  - Pain in extremity [Not Recovered/Not Resolved]
  - Arthralgia [Recovered/Resolved]
  - Pain [Not Recovered/Not Resolved]
  - Tendon disorder [Not Recovered/Not Resolved]
  - Catheter site erythema [Recovering/Resolving]
  - Burning sensation [Not Recovered/Not Resolved]
  - Gastritis [Not Recovered/Not Resolved]
  - Arthritis [Not Recovered/Not Resolved]
  - Oedema peripheral [Unknown]
  - Blood pressure diastolic abnormal [Unknown]
  - Still^s disease [Unknown]
  - Swelling [Unknown]
  - Arthralgia [Not Recovered/Not Resolved]
  - Dysstasia [Not Recovered/Not Resolved]
  - Musculoskeletal pain [Recovering/Resolving]
  - Joint swelling [Unknown]
  - Blood pressure diastolic increased [Unknown]
  - Blood pressure increased [Unknown]
  - Vasodilatation [Unknown]
  - Musculoskeletal stiffness [Unknown]
  - Rheumatoid arthritis [Not Recovered/Not Resolved]
  - Neck pain [Not Recovered/Not Resolved]
  - Muscle spasms [Unknown]
  - Drug ineffective [Unknown]
  - Oedema [Unknown]
  - Synovial cyst [Not Recovered/Not Resolved]
  - Blood pressure fluctuation [Unknown]
  - Muscle spasms [Unknown]
  - Fatigue [Unknown]
  - Oropharyngeal pain [Unknown]
  - Gait disturbance [Not Recovered/Not Resolved]
  - Pain in extremity [Not Recovered/Not Resolved]
  - Oropharyngeal pain [Recovering/Resolving]
  - Headache [Not Recovered/Not Resolved]
  - Pain in extremity [Not Recovered/Not Resolved]
  - Muscular weakness [Recovering/Resolving]
  - Oedema [Not Recovered/Not Resolved]

NARRATIVE: CASE EVENT DATE: 201409
